FAERS Safety Report 9897344 (Version 1)
Quarter: 2014Q1

REPORT INFORMATION
  Report Type: Spontaneous
  Country: US (occurrence: US)
  Receive Date: 20140214
  Receipt Date: 20140214
  Transmission Date: 20141002
  Serious: Yes (Other)
  Sender: FDA-Public Use
  Company Number: US-009507513-1402USA006280

PATIENT
  Sex: 0

DRUGS (6)
  1. TEMOZOLOMIDE [Suspect]
     Indication: GLIOBLASTOMA
     Dosage: UNK
     Route: 048
     Dates: start: 20120508, end: 20120605
  2. TEMOZOLOMIDE [Suspect]
     Dosage: 80 MG/M2 DAILY
     Route: 048
     Dates: start: 20120813
  3. IPILIMUMAB [Concomitant]
     Indication: GLIOBLASTOMA
     Dosage: FIRST TWO DOSES
     Dates: start: 20120629, end: 20120803
  4. IPILIMUMAB [Concomitant]
     Dosage: THIRD DOSE
     Dates: start: 20121005
  5. IMIQUIMOD [Concomitant]
     Dosage: UNK
     Dates: start: 20120622, end: 20120720
  6. IMMUNOTHERAPY (UNSPECIFIED) [Concomitant]
     Dosage: UNK
     Dates: start: 20120622, end: 20120720

REACTIONS (1)
  - Pancytopenia [Unknown]
